FAERS Safety Report 4544518-X (Version None)
Quarter: 2004Q4

REPORT INFORMATION
  Report Type: 
  Country: None (occurrence: None)
  Receive Date: 20041230
  Receipt Date: 20041221
  Transmission Date: 20050328
  Serious: Yes (Other)
  Sender: FDA-Public Use
  Company Number: 200421216BWH

PATIENT
  Age: 31 Year
  Sex: Male

DRUGS (2)
  1. CIPRO IV [Suspect]
     Indication: CALCULUS URETERIC
     Dosage: 400 MG, ONCE, INTRAVENOUS
     Route: 042
     Dates: start: 20041221
  2. CIPRO IV [Suspect]
     Indication: LITHOTRIPSY
     Dosage: 400 MG, ONCE, INTRAVENOUS
     Route: 042
     Dates: start: 20041221

REACTIONS (9)
  - ANAPHYLACTIC REACTION [None]
  - CHEST PAIN [None]
  - FEELING HOT AND COLD [None]
  - FLUSHING [None]
  - INFUSION SITE BURNING [None]
  - INJECTION SITE PRURITUS [None]
  - LUNG INFILTRATION [None]
  - OEDEMA PERIPHERAL [None]
  - VERTIGO [None]
